FAERS Safety Report 5709650-3 (Version None)
Quarter: 2008Q2

REPORT INFORMATION
  Report Type: 
  Country: None (occurrence: None)
  Receive Date: 20080418
  Receipt Date: 20080414
  Transmission Date: 20081010
  Serious: Yes (Hospitalization)
  Sender: FDA-Public Use
  Company Number: B0516969A

PATIENT
  Age: 1 Year
  Sex: Female
  Weight: 16.4 kg

DRUGS (3)
  1. ALKERAN [Suspect]
     Indication: NEUROBLASTOMA
     Dosage: 45MG CYCLIC
     Route: 042
     Dates: start: 20080226, end: 20080228
  2. CARBOPLATIN [Suspect]
     Indication: NEUROBLASTOMA
     Dosage: 360MG CYCLIC
     Route: 042
     Dates: start: 20080226, end: 20080229
  3. ETOPOSIDE [Suspect]
     Indication: NEUROBLASTOMA
     Dosage: 210MG CYCLIC
     Route: 042
     Dates: start: 20080226, end: 20080229

REACTIONS (7)
  - CANDIDIASIS [None]
  - FOLLICULITIS [None]
  - MUCOSAL INFLAMMATION [None]
  - ORAL HERPES [None]
  - SKIN EROSION [None]
  - SKIN EXFOLIATION [None]
  - SKIN HYPERPIGMENTATION [None]
